FAERS Safety Report 19415828 (Version 1)
Quarter: 2021Q2

REPORT INFORMATION
  Report Type: Spontaneous
  Country: PL (occurrence: PL)
  Receive Date: 20210615
  Receipt Date: 20210615
  Transmission Date: 20210717
  Serious: Yes (Other)
  Sender: FDA-Public Use
  Company Number: NVSC2021PL128389

PATIENT
  Age: 46 Year
  Sex: Male

DRUGS (5)
  1. METHOTREXATE. [Concomitant]
     Active Substance: METHOTREXATE
     Indication: PRODUCT USED FOR UNKNOWN INDICATION
     Dosage: 25 MG, QW (15?25MG)
     Route: 058
     Dates: start: 2016, end: 2019
  2. CYCLOSPORINE. [Suspect]
     Active Substance: CYCLOSPORINE
     Indication: PRODUCT USED FOR UNKNOWN INDICATION
     Dosage: UNK
     Route: 065
     Dates: start: 2014, end: 2014
  3. ADALIMUMAB [Concomitant]
     Active Substance: ADALIMUMAB
     Indication: PRODUCT USED FOR UNKNOWN INDICATION
     Dosage: UNK
     Route: 065
     Dates: start: 2015
  4. ADALIMUMAB [Concomitant]
     Active Substance: ADALIMUMAB
     Dosage: UNK UNK, UNKNOWN
     Route: 065
     Dates: start: 201901, end: 201903
  5. SECUKINUMAB. [Concomitant]
     Active Substance: SECUKINUMAB
     Indication: PRODUCT USED FOR UNKNOWN INDICATION
     Dosage: UNK
     Route: 065
     Dates: start: 201908

REACTIONS (1)
  - Hypertensive crisis [Unknown]
